FAERS Safety Report 6315182-4 (Version None)
Quarter: 2009Q3

REPORT INFORMATION
  Report Type: 
  Country: None (occurrence: None)
  Receive Date: 20090819
  Receipt Date: 20090807
  Transmission Date: 20100115
  Serious: Yes (Other)
  Sender: FDA-Public Use
  Company Number: GB-ROCHE-649709

PATIENT
  Age: 9 Year
  Sex: Female

DRUGS (1)
  1. TAMIFLU [Suspect]
     Indication: DRUG USE FOR UNKNOWN INDICATION
     Dosage: DOSE : TWO TABLET TWICE DAILY.
     Route: 065
     Dates: start: 20090730, end: 20090731

REACTIONS (7)
  - AGGRESSION [None]
  - ANGER [None]
  - APATHY [None]
  - CONFUSIONAL STATE [None]
  - DECREASED APPETITE [None]
  - HALLUCINATION [None]
  - NIGHT SWEATS [None]
